FAERS Safety Report 18701747 (Version 1)
Quarter: 2021Q1

REPORT INFORMATION
  Report Type: Spontaneous
  Country: CH (occurrence: CH)
  Receive Date: 20210105
  Receipt Date: 20210105
  Transmission Date: 20210419
  Serious: Yes (Hospitalization)
  Sender: FDA-Public Use
  Company Number: CH-MYLANLABS-2020M1106815

PATIENT
  Age: 47 Year
  Sex: Male
  Weight: 77 kg

DRUGS (7)
  1. TOREM [Suspect]
     Active Substance: TORSEMIDE
     Indication: CARDIAC FAILURE
     Dosage: 5 MILLIGRAM, BID
     Route: 048
     Dates: end: 202011
  2. PANTOZOL [Concomitant]
     Active Substance: PANTOPRAZOLE SODIUM
     Dosage: UNK
  3. LISITRIL [Concomitant]
     Active Substance: LISINOPRIL
     Dosage: UNK
  4. ASPIRIN CARDIO [Concomitant]
     Active Substance: ASPIRIN
     Dosage: UNK
  5. ATORVASTATIN [Concomitant]
     Active Substance: ATORVASTATIN
     Dosage: UNK
  6. BILOL [Concomitant]
     Active Substance: BISOPROLOL
     Dosage: UNK
  7. ALDACTONE                          /00252502/ [Concomitant]
     Active Substance: CANRENOATE POTASSIUM
     Dosage: UNK

REACTIONS (1)
  - Pancreatitis acute [Recovered/Resolved]

NARRATIVE: CASE EVENT DATE: 20201124
